FAERS Safety Report 6386029-5 (Version None)
Quarter: 2009Q4

REPORT INFORMATION
  Report Type: 
  Country: None (occurrence: None)
  Receive Date: 20091002
  Receipt Date: 20081029
  Transmission Date: 20100525
  Serious: No
  Sender: FDA-Public Use
  Company Number: US-ASTRAZENECA-2008UW24189

PATIENT
  Age: 77 Year
  Sex: Female

DRUGS (2)
  1. ARIMIDEX [Suspect]
     Indication: BREAST CANCER
     Route: 048
     Dates: start: 20080601
  2. XIBROM [Concomitant]
     Indication: MACULAR DEGENERATION

REACTIONS (2)
  - HOT FLUSH [None]
  - MUCOSAL DRYNESS [None]
